FAERS Safety Report 6156557-6 (Version None)
Quarter: 2009Q2

REPORT INFORMATION
  Report Type: 
  Country: None (occurrence: None)
  Receive Date: 20090416
  Receipt Date: 20090410
  Transmission Date: 20091009
  Serious: Yes (Hospitalization)
  Sender: FDA-Public Use
  Company Number: US-ASTRAZENECA-2009UW09129

PATIENT
  Age: 54 Year
  Sex: Male
  Weight: 90.7 kg

DRUGS (13)
  1. CRESTOR [Suspect]
     Indication: BLOOD CHOLESTEROL INCREASED
     Route: 048
     Dates: start: 20080601
  2. IPRATROTIUM BROMATE [Concomitant]
     Route: 055
  3. XOPENEX [Concomitant]
     Route: 055
  4. ADVAIR HFA [Concomitant]
     Route: 055
  5. TOPROL-XL [Concomitant]
     Route: 048
  6. PRINIVIL [Concomitant]
     Route: 048
  7. PROMETHAZINE [Concomitant]
     Route: 048
  8. OXYCONTIN [Concomitant]
     Route: 048
  9. DARVOCET [Concomitant]
     Route: 048
  10. CYCLOBENZAPRINE [Concomitant]
     Route: 048
  11. SIMVASTATIN [Concomitant]
     Route: 048
  12. NEXIUM [Concomitant]
     Route: 048
  13. PREDNISONE [Concomitant]
     Route: 048

REACTIONS (1)
  - PNEUMONIA [None]
